FAERS Safety Report 25002836 (Version 1)
Quarter: 2025Q1

REPORT INFORMATION
  Report Type: Spontaneous
  Country: PT (occurrence: PT)
  Receive Date: 20250224
  Receipt Date: 20250224
  Transmission Date: 20250409
  Serious: Yes (Death, Life-Threatening, Hospitalization, Other)
  Sender: IPCA
  Company Number: PT-MLMSERVICE-20250205-PI395847-00043-1

PATIENT

DRUGS (3)
  1. ALLOPURINOL [Suspect]
     Active Substance: ALLOPURINOL
     Indication: Gouty arthritis
     Route: 065
  2. BISOPROLOL [Concomitant]
     Active Substance: BISOPROLOL
     Indication: Product used for unknown indication
     Route: 065
  3. PREDNISOLONE [Concomitant]
     Active Substance: PREDNISOLONE
     Indication: Product used for unknown indication
     Route: 065

REACTIONS (9)
  - Toxic epidermal necrolysis [Fatal]
  - Septic shock [Fatal]
  - Pneumonia [Fatal]
  - Staphylococcal bacteraemia [Fatal]
  - Stenotrophomonas bacteraemia [Fatal]
  - Multiple organ dysfunction syndrome [Fatal]
  - Device related infection [Fatal]
  - Nikolsky^s sign positive [Fatal]
  - General physical health deterioration [Fatal]
